FAERS Safety Report 14940972 (Version 2)
Quarter: 2018Q2

REPORT INFORMATION
  Report Type: Spontaneous
  Country: JP (occurrence: JP)
  Receive Date: 20180525
  Receipt Date: 20180615
  Transmission Date: 20180711
  Serious: Yes (Death, Hospitalization)
  Sender: FDA-Public Use
  Company Number: JP-PFIZER INC-2018212997

PATIENT
  Age: 89 Year
  Sex: Female
  Weight: 40 kg

DRUGS (13)
  1. VALSARTAN. [Concomitant]
     Active Substance: VALSARTAN
  2. LOXOPROFEN [Concomitant]
     Active Substance: LOXOPROFEN
  3. K SUPPLY [Concomitant]
     Active Substance: POTASSIUM CHLORIDE
  4. REBAMIPIDE [Concomitant]
     Active Substance: REBAMIPIDE
  5. VESICARE [Concomitant]
     Active Substance: SOLIFENACIN SUCCINATE
  6. XELJANZ [Suspect]
     Active Substance: TOFACITINIB CITRATE
     Indication: RHEUMATOID ARTHRITIS
     Dosage: 5 MG, 2X/DAY
     Route: 048
     Dates: start: 20180302, end: 20180501
  7. LOTRIGA [Concomitant]
     Active Substance: OMEGA-3-ACID ETHYL ESTERS
     Dosage: GRANULAR CAPSULES
  8. AMLODIPINE [Concomitant]
     Active Substance: AMLODIPINE BESYLATE
  9. METILDIGOXIN [Concomitant]
     Active Substance: METILDIGOXIN
  10. DENOTAS [Concomitant]
     Active Substance: CALCIUM CARBONATE\CHOLECALCIFEROL\MAGNESIUM CARBONATE
  11. FAMOTIDINE. [Concomitant]
     Active Substance: FAMOTIDINE
  12. TRIAZOLAM. [Concomitant]
     Active Substance: TRIAZOLAM
  13. PITAVASTATIN. [Concomitant]
     Active Substance: PITAVASTATIN CALCIUM

REACTIONS (3)
  - Interstitial lung disease [Fatal]
  - Condition aggravated [Fatal]
  - Pneumonia bacterial [Fatal]

NARRATIVE: CASE EVENT DATE: 20180427
